FAERS Safety Report 4490471-7 (Version None)
Quarter: 2004Q4

REPORT INFORMATION
  Report Type: 
  Country: None (occurrence: None)
  Receive Date: 20041028
  Receipt Date: 20041021
  Transmission Date: 20050328
  Serious: Yes (Hospitalization, Other)
  Sender: FDA-Public Use
  Company Number: 2004240099FR

PATIENT
  Age: 28 Year
  Sex: Female

DRUGS (1)
  1. TRELSTAR 11.25 MG (TRIPTORELIN PAMOATE) POWDER, STERILE, 11.25 MG [Suspect]
     Dosage: 11.25 MG, INTRAMUSCULAR
     Route: 030
     Dates: start: 20040612

REACTIONS (4)
  - ABORTION INDUCED [None]
  - DRUG EXPOSURE DURING PREGNANCY [None]
  - DRUG INEFFECTIVE [None]
  - UNINTENDED PREGNANCY [None]
